FAERS Safety Report 21684380 (Version 1)
Quarter: 2022Q4

REPORT INFORMATION
  Report Type: Spontaneous
  Country: US (occurrence: None)
  Receive Date: 20221202
  Receipt Date: 20221202
  Transmission Date: 20230113
  Serious: Yes (Death)
  Sender: FDA-Public Use
  Company Number: None

PATIENT
  Age: 66 Year
  Sex: Female

DRUGS (1)
  1. TADALAFIL [Suspect]
     Active Substance: TADALAFIL
     Indication: Pulmonary hypertension
     Dosage: 20MG QD ORAL?
     Route: 048
     Dates: start: 20181221, end: 20221111

REACTIONS (4)
  - Metabolic encephalopathy [None]
  - Respiratory failure [None]
  - Unresponsive to stimuli [None]
  - Therapy non-responder [None]

NARRATIVE: CASE EVENT DATE: 20221119
